FAERS Safety Report 9196256 (Version 1)
Quarter: 2013Q1

REPORT INFORMATION
  Report Type: Spontaneous
  Country: US (occurrence: US)
  Receive Date: 20130328
  Receipt Date: 20130328
  Transmission Date: 20140127
  Serious: Yes (Death)
  Sender: FDA-Public Use
  Company Number: US-PFIZER INC-2013097413

PATIENT
  Age: 52 Year
  Sex: Female

DRUGS (1)
  1. XALKORI [Suspect]
     Indication: MALIGNANT MELANOMA
     Dosage: 250 MG, 1X/DAY
     Dates: start: 20130116

REACTIONS (2)
  - Off label use [Fatal]
  - Death [Fatal]
